FAERS Safety Report 7480939-3 (Version None)
Quarter: 2011Q2

REPORT INFORMATION
  Report Type: 
  Country: None (occurrence: None)
  Receive Date: 20110506
  Receipt Date: 20110426
  Transmission Date: 20111010
  Serious: Yes (Life-Threatening, Other)
  Sender: FDA-Public Use
  Company Number: 1000020340

PATIENT
  Age: 62 Year
  Sex: Male

DRUGS (7)
  1. PREDNISOLONE [Concomitant]
  2. SYMBICORT [Concomitant]
  3. OXYGEN (OXYGEN) [Concomitant]
  4. ROFLUMILAST (ROFLUMILAST) (TABLETS) [Suspect]
     Indication: CHRONIC OBSTRUCTIVE PULMONARY DISEASE
     Dosage: 1 DOSAGE  FORM (1 DOSAGE FORMS, 1 IN 1 D), ORA
     Route: 048
     Dates: start: 20101018, end: 20100101
  5. SPIRIVA [Concomitant]
  6. ALBUTEROL SULFATE [Concomitant]
  7. ROFLUMILAST (ROFLUMILAST) (TABLETS) [Suspect]
     Indication: CHRONIC OBSTRUCTIVE PULMONARY DISEASE
     Dosage: 1 DF (I DOSAGE FORMS, 1 IN 1 D), ORAL
     Route: 048
     Dates: start: 20110303, end: 20110407

REACTIONS (11)
  - ASPARTATE AMINOTRANSFERASE INCREASED [None]
  - ALANINE AMINOTRANSFERASE INCREASED [None]
  - LIVER DISORDER [None]
  - C-REACTIVE PROTEIN INCREASED [None]
  - BLOOD ALKALINE PHOSPHATASE INCREASED [None]
  - JAUNDICE [None]
  - INITIAL INSOMNIA [None]
  - MUSCLE SPASMS [None]
  - GAMMA-GLUTAMYLTRANSFERASE INCREASED [None]
  - HEART RATE INCREASED [None]
  - BLOOD BILIRUBIN INCREASED [None]
